FAERS Safety Report 19977585 (Version 4)
Quarter: 2022Q1

REPORT INFORMATION
  Report Type: Spontaneous
  Country: CN (occurrence: CN)
  Receive Date: 20211021
  Receipt Date: 20220203
  Transmission Date: 20220423
  Serious: Yes (Other)
  Sender: FDA-Public Use
  Company Number: ALC2021CN005731

PATIENT
  Age: 76 Year
  Sex: Male

DRUGS (6)
  1. AZOPT [Suspect]
     Active Substance: BRINZOLAMIDE
     Indication: Ocular hypertension
     Dosage: 1 DRP, BID
     Route: 047
     Dates: start: 202104
  2. TRAVATAN [Suspect]
     Active Substance: TRAVOPROST
     Indication: Ocular hypertension
     Dosage: 1 DRP, QD (ONCE EVERY NIGHT)
     Route: 047
     Dates: start: 20210615
  3. TRAVATAN [Suspect]
     Active Substance: TRAVOPROST
     Dosage: 1 DRP QD (ONCE EVERY NIGHT)
     Route: 047
     Dates: start: 20210927
  4. TRAVATAN [Suspect]
     Active Substance: TRAVOPROST
     Dosage: UNK, QD (ONCE EVERY NIGHT)
     Route: 047
     Dates: start: 20211015
  5. TRAVATAN [Suspect]
     Active Substance: TRAVOPROST
     Dosage: 1 DRP, QD
     Route: 065
     Dates: start: 20210927, end: 20211015
  6. ALPHAGAN P [Concomitant]
     Active Substance: BRIMONIDINE TARTRATE
     Indication: Product used for unknown indication
     Dosage: UNK
     Route: 065

REACTIONS (7)
  - Ocular hypertension [Recovering/Resolving]
  - Ocular discomfort [Not Recovered/Not Resolved]
  - Headache [Recovering/Resolving]
  - Eye pain [Recovering/Resolving]
  - Eye swelling [Recovering/Resolving]
  - Drug ineffective [Recovering/Resolving]
  - Eye pruritus [Recovering/Resolving]

NARRATIVE: CASE EVENT DATE: 20211001
